FAERS Safety Report 5753982-X (Version None)
Quarter: 2008Q2

REPORT INFORMATION
  Report Type: 
  Country: None (occurrence: None)
  Receive Date: 20080527
  Receipt Date: 20080527
  Transmission Date: 20081010
  Serious: Yes (Other)
  Sender: FDA-Public Use
  Company Number: None

PATIENT
  Age: 56 Year
  Sex: Male
  Weight: 78.0187 kg

DRUGS (2)
  1. RANITIDINE [Suspect]
     Indication: GASTRITIS
     Dosage: 1 QD PO
     Route: 048
     Dates: start: 20080401, end: 20080526
  2. RANITIDINE [Suspect]
     Indication: GASTROOESOPHAGEAL REFLUX DISEASE
     Dosage: 1 QD PO
     Route: 048
     Dates: start: 20080401, end: 20080526

REACTIONS (2)
  - PHARMACEUTICAL PRODUCT COMPLAINT [None]
  - RECTAL DISCHARGE [None]
